FAERS Safety Report 21812642 (Version 11)
Quarter: 2024Q1

REPORT INFORMATION
  Report Type: Report from Study
  Country: US (occurrence: US)
  Receive Date: 20230103
  Receipt Date: 20240219
  Transmission Date: 20240410
  Serious: Yes (Other)
  Sender: FDA-Public Use
  Company Number: US-002147023-NVSC2023US001002

PATIENT
  Sex: Female

DRUGS (2)
  1. KESIMPTA [Suspect]
     Active Substance: OFATUMUMAB
     Indication: Multiple sclerosis
     Dosage: UNK
     Route: 065
     Dates: start: 20221229
  2. TYLENOL [Concomitant]
     Active Substance: ACETAMINOPHEN
     Indication: Product used for unknown indication
     Dosage: UNK (INCREASED DOSE WITH SECOND INJECTION)
     Route: 065

REACTIONS (22)
  - Multiple sclerosis [Unknown]
  - Condition aggravated [Unknown]
  - Brain fog [Unknown]
  - Influenza like illness [Recovered/Resolved]
  - Chills [Unknown]
  - Headache [Unknown]
  - Pain [Unknown]
  - Arthralgia [Unknown]
  - Vestibular migraine [Not Recovered/Not Resolved]
  - Malaise [Unknown]
  - Ear infection [Unknown]
  - Persistent postural-perceptual dizziness [Unknown]
  - Illness [Unknown]
  - COVID-19 [Unknown]
  - Pyrexia [Unknown]
  - Cough [Unknown]
  - Chest pain [Unknown]
  - Respiratory tract infection bacterial [Unknown]
  - Bronchitis [Unknown]
  - Asthma [Unknown]
  - Nasopharyngitis [Unknown]
  - Respiratory disorder [Unknown]
